FAERS Safety Report 9518098 (Version 1)
Quarter: 2013Q1

REPORT INFORMATION
  Report Type: Spontaneous
  Country: US (occurrence: None)
  Receive Date: 20130305
  Receipt Date: 20130305
  Transmission Date: 20140127
  Serious: Yes (Other)
  Sender: FDA-Public Use
  Company Number: 163-21880-12082545

PATIENT
  Age: 69 Year
  Sex: Female

DRUGS (4)
  1. REVLIMID (LENALIDOMIDE) (CAPSULES) [Suspect]
     Indication: CHRONIC LYMPHOCYTIC LEUKAEMIA
     Route: 048
     Dates: start: 20120709
  2. PAMCICLOVIR (FAMICLOVIR) (UNKNOWN) [Concomitant]
  3. DAPSONE (DAPSONE) (UNKNOWN) [Concomitant]
  4. AZITHROMYCIN (AZITHROMYCIN) (UNKNOWN) [Concomitant]

REACTIONS (1)
  - Cerebrovascular accident [None]
